FAERS Safety Report 25593059 (Version 4)
Quarter: 2025Q4

REPORT INFORMATION
  Report Type: Report from Study
  Country: US (occurrence: US)
  Receive Date: 20250722
  Receipt Date: 20251008
  Transmission Date: 20260118
  Serious: Yes (Other)
  Sender: MALLINCKRODT
  Company Number: US-MALLINCKRODT-MNK202504466

PATIENT
  Age: 73 Year
  Sex: Female

DRUGS (3)
  1. CORTICOTROPIN [Suspect]
     Active Substance: CORTICOTROPIN
     Indication: Orbital myositis
     Dosage: 80 UNITS
     Route: 058
     Dates: start: 20250709
  2. TEPEZZA [Concomitant]
     Active Substance: TEPROTUMUMAB-TRBW
     Dosage: UNKNOWN
  3. TIMOLOL [Concomitant]
     Active Substance: TIMOLOL
     Indication: Glaucoma
     Dosage: UNKNOWN

REACTIONS (8)
  - Cataract [Unknown]
  - Injection site pruritus [Unknown]
  - Injection site haemorrhage [Unknown]
  - Injection site bruising [Unknown]
  - Injection site rash [Unknown]
  - Incorrect route of product administration [Unknown]
  - Inappropriate schedule of product administration [Unknown]
  - Drug ineffective [Unknown]

NARRATIVE: CASE EVENT DATE: 20250101
